FAERS Safety Report 5221561-9 (Version None)
Quarter: 2007Q1

REPORT INFORMATION
  Report Type: 
  Country: None (occurrence: None)
  Receive Date: 20070127
  Receipt Date: 20070118
  Transmission Date: 20070707
  Serious: Yes (Hospitalization)
  Sender: FDA-Public Use
  Company Number: FR-ABBOTT-06P-056-0330649-00

PATIENT
  Sex: Male

DRUGS (13)
  1. DEPAKENE [Suspect]
     Indication: CONVULSION
     Route: 048
     Dates: start: 20051109, end: 20060131
  2. SILYMARIN [Concomitant]
     Indication: DRUG USE FOR UNKNOWN INDICATION
     Route: 048
     Dates: start: 20060101, end: 20060118
  3. TEMOZOLOMIDE [Concomitant]
     Indication: GLIOBLASTOMA
     Route: 048
     Dates: start: 20051017, end: 20051215
  4. TEMOZOLOMIDE [Concomitant]
     Indication: DRUG USE FOR UNKNOWN INDICATION
     Route: 048
     Dates: start: 20060111, end: 20060116
  5. PREDNISOLONE SODIUM SULFOBENZOATE [Concomitant]
     Indication: BRAIN OEDEMA
     Route: 048
     Dates: start: 20051017, end: 20060118
  6. PREDNISOLONE SODIUM SULFOBENZOATE [Concomitant]
     Indication: DRUG USE FOR UNKNOWN INDICATION
     Route: 048
     Dates: start: 20060118
  7. GLUCOPHAGE [Concomitant]
     Indication: DIABETES MELLITUS
     Route: 048
     Dates: start: 20051126, end: 20060123
  8. REISHI [Concomitant]
     Indication: DRUG USE FOR UNKNOWN INDICATION
     Route: 065
     Dates: start: 20051201
  9. OPTISELENE [Concomitant]
     Indication: DRUG USE FOR UNKNOWN INDICATION
     Route: 065
     Dates: start: 20051115, end: 20051130
  10. OPTISELENE [Concomitant]
     Route: 065
     Dates: start: 20060110, end: 20060115
  11. CURCUMA [Concomitant]
     Indication: DRUG USE FOR UNKNOWN INDICATION
     Route: 065
  12. ONDANSETRON [Concomitant]
     Indication: DRUG USE FOR UNKNOWN INDICATION
     Dates: start: 20060111, end: 20060116
  13. GABAPENTIN [Concomitant]
     Indication: CONVULSION
     Dates: start: 20060131

REACTIONS (12)
  - ACUTE GENERALISED EXANTHEMATOUS PUSTULOSIS [None]
  - BLOOD LACTATE DEHYDROGENASE INCREASED [None]
  - DIABETES MELLITUS [None]
  - EOSINOPHILIA [None]
  - FACE OEDEMA [None]
  - HEPATIC STEATOSIS [None]
  - LYMPHOPENIA [None]
  - OEDEMA PERIPHERAL [None]
  - PYREXIA [None]
  - SERUM FERRITIN ABNORMAL [None]
  - SKIN EXFOLIATION [None]
  - TOXIC SKIN ERUPTION [None]
